FAERS Safety Report 7442115-X (Version None)
Quarter: 2011Q2

REPORT INFORMATION
  Report Type: 
  Country: None (occurrence: None)
  Receive Date: 20110428
  Receipt Date: 20110414
  Transmission Date: 20111010
  Serious: Yes (Other)
  Sender: FDA-Public Use
  Company Number: PHHY2011BR31979

PATIENT
  Age: 31 Year
  Sex: Male

DRUGS (1)
  1. LEPONEX [Suspect]
     Dosage: 100 MG, 5 A DAY

REACTIONS (2)
  - INSOMNIA [None]
  - CRYING [None]
